FAERS Safety Report 13517062 (Version 1)
Quarter: 2017Q2

REPORT INFORMATION
  Report Type: Spontaneous
  Country: IT (occurrence: IT)
  Receive Date: 20170505
  Receipt Date: 20170505
  Transmission Date: 20170830
  Serious: Yes (Other)
  Sender: FDA-Public Use
  Company Number: IT-ROCHE-1931487

PATIENT
  Sex: Female

DRUGS (1)
  1. ZELBORAF [Suspect]
     Active Substance: VEMURAFENIB
     Indication: METASTATIC MALIGNANT MELANOMA
     Dosage: 240 MG  56 TABLETS
     Route: 048
     Dates: start: 20161222, end: 20170315

REACTIONS (2)
  - Renal failure [Recovered/Resolved]
  - Hepatic enzyme increased [Recovered/Resolved]
